FAERS Safety Report 11157840 (Version 2)
Quarter: 2015Q3

REPORT INFORMATION
  Report Type: Spontaneous
  Country: US (occurrence: None)
  Receive Date: 20150601
  Receipt Date: 20150917
  Transmission Date: 20151125
  Serious: Yes (Other)
  Sender: FDA-Public Use
  Company Number: 1224850-2015-00038

PATIENT
  Age: 41 Year
  Sex: Female

DRUGS (3)
  1. PRILOSEC [Concomitant]
     Active Substance: OMEPRAZOLE MAGNESIUM
  2. PHOSLO [Suspect]
     Active Substance: CALCIUM ACETATE
     Indication: HYPERPHOSPHATAEMIA
     Dosage: 1334 MG BID PO
     Route: 048
     Dates: start: 20020101, end: 20031001
  3. MULTI-VITAMINS (CALCIUM PANTOTHENATE, FOLIC ACID, VITAMINS NOS) [Concomitant]
     Active Substance: VITAMINS

REACTIONS (7)
  - Nausea [None]
  - Weight decreased [None]
  - Abdominal pain upper [None]
  - Fatigue [None]
  - Aortic calcification [None]
  - Gastrointestinal disorder [None]
  - Medication error [None]

NARRATIVE: CASE EVENT DATE: 20020601
